FAERS Safety Report 11116505 (Version 1)
Quarter: 2015Q2

REPORT INFORMATION
  Report Type: Spontaneous
  Country: AU (occurrence: AU)
  Receive Date: 20150515
  Receipt Date: 20150515
  Transmission Date: 20150821
  Serious: Yes (Other)
  Sender: FDA-Public Use
  Company Number: AU-ABBVIE-15K-008-1388614-00

PATIENT
  Age: 66 Year
  Sex: Female

DRUGS (1)
  1. HUMIRA [Suspect]
     Active Substance: ADALIMUMAB
     Indication: CROHN^S DISEASE
     Route: 065
     Dates: start: 20140411

REACTIONS (9)
  - Fall [Unknown]
  - Crohn^s disease [Unknown]
  - Pain [Unknown]
  - Drug effect incomplete [Unknown]
  - Meniscus injury [Unknown]
  - Large intestinal stenosis [Unknown]
  - Deep vein thrombosis [Unknown]
  - Arthralgia [Unknown]
  - Nasopharyngitis [Unknown]

NARRATIVE: CASE EVENT DATE: 201405
